FAERS Safety Report 7913840-9 (Version None)
Quarter: 2011Q4

REPORT INFORMATION
  Report Type: 
  Country: None (occurrence: None)
  Receive Date: 20111110
  Receipt Date: 20111028
  Transmission Date: 20120403
  Serious: Yes (Hospitalization)
  Sender: FDA-Public Use
  Company Number: JPI-P-017940

PATIENT
  Age: 54 Year
  Sex: Female
  Weight: 89.8122 kg

DRUGS (5)
  1. GLATIRAMER ACETATE [Concomitant]
  2. XYREM [Suspect]
     Indication: CATAPLEXY
     Dosage: UNKNOWN, ORAL
     Route: 048
     Dates: start: 20060103
  3. DULOXETIME HYDROCHLORIDE [Concomitant]
  4. XYREM [Suspect]
     Dosage: 9 GM (4.5 GM, 2 IN 1 D), ORAL
     Route: 048
  5. ALPRAZOLAM [Concomitant]

REACTIONS (4)
  - KNEE ARTHROPLASTY [None]
  - MENISCUS LESION [None]
  - ARTHRALGIA [None]
  - ARTHRITIS [None]
